FAERS Safety Report 12196304 (Version 1)
Quarter: 2016Q1

REPORT INFORMATION
  Report Type: Spontaneous
  Country: US (occurrence: US)
  Receive Date: 20160321
  Receipt Date: 20160321
  Transmission Date: 20160526
  Serious: No
  Sender: FDA-Public Use
  Company Number: US-AUXILIUM PHARMACEUTICALS INC.-201502028

PATIENT
  Age: 70 Year
  Sex: Male
  Weight: 104.42 kg

DRUGS (13)
  1. NIASPAN [Concomitant]
     Active Substance: NIACIN
  2. CALCIUM [Concomitant]
     Active Substance: CALCIUM
  3. FISH OIL [Concomitant]
     Active Substance: FISH OIL
  4. MULTIVITAMINS [Concomitant]
     Active Substance: VITAMINS
  5. XIAFLEX [Suspect]
     Active Substance: COLLAGENASE CLOSTRIDIUM HISTOLYTICUM
     Indication: DUPUYTREN^S CONTRACTURE
     Route: 026
     Dates: start: 20140303, end: 20140303
  6. ENALAPRIL [Concomitant]
     Active Substance: ENALAPRIL
  7. CARVEDILOL. [Concomitant]
     Active Substance: CARVEDILOL
  8. COQ10 [Concomitant]
     Active Substance: UBIDECARENONE
  9. JALYN [Concomitant]
     Active Substance: DUTASTERIDE\TAMSULOSIN HYDROCHLORIDE
  10. BYETTA [Concomitant]
     Active Substance: EXENATIDE
     Indication: DIABETES MELLITUS
  11. ACTOS [Concomitant]
     Active Substance: PIOGLITAZONE HYDROCHLORIDE
  12. ASPIRIN. [Concomitant]
     Active Substance: ASPIRIN
  13. MAGNESIUM [Concomitant]
     Active Substance: MAGNESIUM

REACTIONS (7)
  - Pain in extremity [Not Recovered/Not Resolved]
  - Dupuytren^s contracture [Not Recovered/Not Resolved]
  - Ecchymosis [Recovered/Resolved]
  - Swelling [Recovering/Resolving]
  - Arthropathy [Not Recovered/Not Resolved]
  - Laceration [Recovering/Resolving]
  - Musculoskeletal stiffness [Not Recovered/Not Resolved]

NARRATIVE: CASE EVENT DATE: 201403
